FAERS Safety Report 15640150 (Version 2)
Quarter: 2019Q1

REPORT INFORMATION
  Report Type: Report from Study
  Country: US (occurrence: US)
  Receive Date: 20181120
  Receipt Date: 20190131
  Transmission Date: 20190417
  Serious: No
  Sender: FDA-Public Use
  Company Number: US-BAUSCH-BL-2018-032007

PATIENT
  Sex: Female

DRUGS (2)
  1. XIFAXAN [Suspect]
     Active Substance: RIFAXIMIN
     Indication: PRODUCT USE IN UNAPPROVED INDICATION
     Route: 065
     Dates: start: 20180822, end: 201809
  2. XIFAXAN [Suspect]
     Active Substance: RIFAXIMIN
     Indication: GASTROINTESTINAL BACTERIAL OVERGROWTH
     Route: 065
     Dates: start: 201807, end: 20180811

REACTIONS (7)
  - Product use in unapproved indication [Recovered/Resolved]
  - Gastrointestinal bacterial overgrowth [Unknown]
  - Disease recurrence [Unknown]
  - Constipation [Unknown]
  - Gastrointestinal disorder [Unknown]
  - Insurance issue [Not Recovered/Not Resolved]
  - Urinary tract infection [Unknown]

NARRATIVE: CASE EVENT DATE: 2018
